FAERS Safety Report 25016834 (Version 1)
Quarter: 2025Q1

REPORT INFORMATION
  Report Type: Report from Study
  Country: US (occurrence: US)
  Receive Date: 20250227
  Receipt Date: 20250227
  Transmission Date: 20250409
  Serious: Yes (Other)
  Sender: AMGEN
  Company Number: US-AMGEN-USASL2025017037

PATIENT
  Sex: Female

DRUGS (2)
  1. REPATHA [Suspect]
     Active Substance: EVOLOCUMAB
     Indication: Blood cholesterol increased
     Dosage: 140 MILLIGRAM, Q2WK
     Route: 065
  2. CINNAMON [Concomitant]
     Active Substance: CINNAMON

REACTIONS (4)
  - Autoimmune thyroiditis [Unknown]
  - Diabetes mellitus [Unknown]
  - Drug ineffective [Unknown]
  - Rash [Recovered/Resolved]
